FAERS Safety Report 19757245 (Version 1)
Quarter: 2021Q3

REPORT INFORMATION
  Report Type: Spontaneous
  Country: CA (occurrence: CA)
  Receive Date: 20210828
  Receipt Date: 20210828
  Transmission Date: 20211014
  Serious: Yes (Hospitalization)
  Sender: FDA-Public Use
  Company Number: CA-TAKEDA-2021TUS052007

PATIENT
  Age: 61 Year
  Sex: Male
  Weight: 73 kg

DRUGS (3)
  1. ROSUVASTATIN. [Concomitant]
     Active Substance: ROSUVASTATIN
  2. HUMAN NORMAL IMMUNOGLOBULIN [Suspect]
     Active Substance: HUMAN IMMUNOGLOBULIN G
     Indication: PRIMARY IMMUNODEFICIENCY SYNDROME
     Dosage: 12 GRAM, 1/WEEK
     Route: 065
  3. MORNIFLUMATE [Concomitant]
     Active Substance: MORNIFLUMATE

REACTIONS (2)
  - Therapy interrupted [Unknown]
  - Coronary artery occlusion [Unknown]
